FAERS Safety Report 13037399 (Version 1)
Quarter: 2016Q4

REPORT INFORMATION
  Report Type: Spontaneous
  Country: US (occurrence: US)
  Receive Date: 20161216
  Receipt Date: 20161216
  Transmission Date: 20170207
  Serious: Yes (Other)
  Sender: FDA-Public Use
  Company Number: US-TEVA-720145USA

PATIENT
  Sex: Female

DRUGS (1)
  1. HYDROCORTISONE. [Suspect]
     Active Substance: HYDROCORTISONE
     Indication: PROCTOCOLECTOMY
     Route: 065

REACTIONS (4)
  - Burning sensation [Unknown]
  - Adverse event [Unknown]
  - Frequent bowel movements [Unknown]
  - Pruritus [Unknown]
